FAERS Safety Report 5229825-X (Version None)
Quarter: 2007Q1

REPORT INFORMATION
  Report Type: 
  Country: None (occurrence: None)
  Receive Date: 20070206
  Receipt Date: 20060728
  Transmission Date: 20070707
  Serious: No
  Sender: FDA-Public Use
  Company Number: US-GLAXOSMITHKLINE-A0558191A

PATIENT
  Age: 26 Year
  Sex: Female
  Weight: 61.4 kg

DRUGS (2)
  1. PAXIL [Suspect]
     Indication: DRUG USE FOR UNKNOWN INDICATION
     Route: 048
     Dates: start: 20031101
  2. PAXIL CR [Suspect]
     Indication: DRUG USE FOR UNKNOWN INDICATION
     Route: 048

REACTIONS (27)
  - ABDOMINAL PAIN [None]
  - ABNORMAL DREAMS [None]
  - ANGER [None]
  - BURNING SENSATION [None]
  - CHILLS [None]
  - CRYING [None]
  - DECREASED APPETITE [None]
  - DIARRHOEA [None]
  - DIZZINESS [None]
  - DRUG WITHDRAWAL SYNDROME [None]
  - HEADACHE [None]
  - HYPERACUSIS [None]
  - HYPERHIDROSIS [None]
  - INFLUENZA LIKE ILLNESS [None]
  - INSOMNIA [None]
  - IRRITABILITY [None]
  - MIGRAINE [None]
  - MOOD SWINGS [None]
  - MOTION SICKNESS [None]
  - MUSCLE TWITCHING [None]
  - NAUSEA [None]
  - PARAESTHESIA [None]
  - PAROSMIA [None]
  - PYREXIA [None]
  - SEXUAL DYSFUNCTION [None]
  - VERTIGO [None]
  - VOMITING [None]
